FAERS Safety Report 14597238 (Version 1)
Quarter: 2018Q1

REPORT INFORMATION
  Report Type: Spontaneous
  Country: US (occurrence: US)
  Receive Date: 20180305
  Receipt Date: 20180305
  Transmission Date: 20180509
  Serious: Yes (Other)
  Sender: FDA-Public Use
  Company Number: US-AMGEN-USASP2018028490

PATIENT
  Age: 71 Year
  Sex: Female

DRUGS (2)
  1. PLAQUENIL [Concomitant]
     Active Substance: HYDROXYCHLOROQUINE SULFATE
     Indication: RHEUMATOID ARTHRITIS
     Dosage: UNK
  2. ENBREL [Suspect]
     Active Substance: ETANERCEPT
     Indication: RHEUMATOID ARTHRITIS
     Dosage: 50 MG, AS NECESSARY
     Route: 065
     Dates: end: 2018

REACTIONS (4)
  - Hepatitis C [Recovered/Resolved]
  - Off label use [Unknown]
  - Pain [Unknown]
  - Hand fracture [Unknown]

NARRATIVE: CASE EVENT DATE: 2018
